FAERS Safety Report 25617241 (Version 1)
Quarter: 2025Q3

REPORT INFORMATION
  Report Type: Spontaneous
  Country: EU (occurrence: EU)
  Receive Date: 20250729
  Receipt Date: 20250729
  Transmission Date: 20251020
  Serious: Yes (Life-Threatening, Hospitalization, Other)
  Sender: TAKEDA
  Company Number: None

PATIENT
  Age: 23 Year
  Sex: Female

DRUGS (5)
  1. BRINTELLIX [Suspect]
     Active Substance: VORTIOXETINE HYDROBROMIDE
     Indication: Toxicity to various agents
     Dates: start: 20250527, end: 20250527
  2. CITALOPRAM [Suspect]
     Active Substance: CITALOPRAM
     Indication: Toxicity to various agents
     Dates: start: 20250527, end: 20250527
  3. PREGABALIN [Suspect]
     Active Substance: PREGABALIN
     Indication: Toxicity to various agents
     Dates: start: 20250527, end: 20250527
  4. OXAZEPAM [Suspect]
     Active Substance: OXAZEPAM
     Indication: Toxicity to various agents
     Dates: start: 20250527, end: 20250527
  5. DOXYLAMINE SUCCINATE [Suspect]
     Active Substance: DOXYLAMINE SUCCINATE
     Indication: Toxicity to various agents
     Dates: start: 20250527, end: 20250527

REACTIONS (4)
  - Coma [Recovered/Resolved]
  - Electrocardiogram QT prolonged [Recovered/Resolved]
  - Toxicity to various agents [Recovered/Resolved]
  - Hypotension [Recovered/Resolved]

NARRATIVE: CASE EVENT DATE: 20250527
